FAERS Safety Report 12971074 (Version 2)
Quarter: 2016Q4

REPORT INFORMATION
  Report Type: Spontaneous
  Country: US (occurrence: US)
  Receive Date: 20161123
  Receipt Date: 20161128
  Transmission Date: 20170207
  Serious: No
  Sender: FDA-Public Use
  Company Number: US-JAZZ-2016-US-018914

PATIENT
  Sex: Female

DRUGS (41)
  1. CLARITIN [Concomitant]
     Active Substance: LORATADINE
  2. MOBIC [Concomitant]
     Active Substance: MELOXICAM
  3. VYVANSE [Concomitant]
     Active Substance: LISDEXAMFETAMINE DIMESYLATE
  4. BACLOFEN. [Concomitant]
     Active Substance: BACLOFEN
  5. NORCO [Concomitant]
     Active Substance: ACETAMINOPHEN\HYDROCODONE BITARTRATE
  6. MAGNESIUM CARBONATE [Concomitant]
     Active Substance: MAGNESIUM CARBONATE
  7. ZYRTEC [Concomitant]
     Active Substance: CETIRIZINE HYDROCHLORIDE
  8. FLONASE                            /00908302/ [Concomitant]
     Active Substance: MOMETASONE FUROATE
  9. TYLENOL WITH CODEINE [Concomitant]
     Active Substance: ACETAMINOPHEN\CODEINE PHOSPHATE
  10. COREG [Concomitant]
     Active Substance: CARVEDILOL
  11. FISH OIL CONCENTRATE [Concomitant]
     Active Substance: FISH OIL
  12. MULTIVITAMINS                      /00116001/ [Concomitant]
  13. METHOCARBAMOL. [Concomitant]
     Active Substance: METHOCARBAMOL
  14. GUAIFENESIN. [Concomitant]
     Active Substance: GUAIFENESIN
  15. ESTRACE [Concomitant]
     Active Substance: ESTRADIOL
  16. DURAHIST [Concomitant]
  17. LOTREL                             /01388302/ [Concomitant]
     Active Substance: LOTEPREDNOL ETABONATE
  18. NAPROSYN [Concomitant]
     Active Substance: NAPROXEN
  19. MOTRIN [Concomitant]
     Active Substance: IBUPROFEN
  20. XYREM [Suspect]
     Active Substance: SODIUM OXYBATE
     Dosage: 3 G, FIRST DOSE
     Route: 048
     Dates: start: 201505
  21. XYREM [Suspect]
     Active Substance: SODIUM OXYBATE
     Dosage: 5 G, SECOND DOSE
     Route: 048
     Dates: start: 201505
  22. XYREM [Suspect]
     Active Substance: SODIUM OXYBATE
     Indication: NARCOLEPSY
     Dosage: 2.25 G, BID
     Route: 048
     Dates: start: 200308, end: 2003
  23. XYREM [Suspect]
     Active Substance: SODIUM OXYBATE
     Dosage: DOSE ADJUSTMENT
     Route: 048
     Dates: start: 200509, end: 201505
  24. PREDNISONE. [Concomitant]
     Active Substance: PREDNISONE
  25. LASIX [Concomitant]
     Active Substance: FUROSEMIDE
  26. ADDERALL [Concomitant]
     Active Substance: AMPHETAMINE ASPARTATE\AMPHETAMINE SULFATE\DEXTROAMPHETAMINE SACCHARATE\DEXTROAMPHETAMINE SULFATE
  27. BENAZEPRIL [Concomitant]
     Active Substance: BENAZEPRIL HYDROCHLORIDE
  28. FELDENE [Concomitant]
     Active Substance: PIROXICAM
  29. NASACORT ALLERGY 24HR [Concomitant]
     Active Substance: TRIAMCINOLONE ACETONIDE
  30. RHINOCORT                          /00212602/ [Concomitant]
  31. DESOXIMETASONE. [Concomitant]
     Active Substance: DESOXIMETASONE
  32. GLUCOSAMINE [Concomitant]
     Active Substance: GLUCOSAMINE
  33. XYREM [Suspect]
     Active Substance: SODIUM OXYBATE
     Dosage: 2.25 G, BID
     Route: 048
     Dates: start: 200507, end: 200509
  34. BENZONATATE. [Concomitant]
     Active Substance: BENZONATATE
  35. CALCIUM + VITAMIN D                /01483701/ [Concomitant]
     Active Substance: CALCIUM\VITAMIN D
  36. TRAMADOL. [Concomitant]
     Active Substance: TRAMADOL
  37. RESTASIS [Concomitant]
     Active Substance: CYCLOSPORINE
  38. KETOCONAZOLE. [Concomitant]
     Active Substance: KETOCONAZOLE
  39. NUVIGIL [Concomitant]
     Active Substance: ARMODAFINIL
  40. KRILL OIL [Concomitant]
     Active Substance: DIETARY SUPPLEMENT
  41. ZOLOFT [Concomitant]
     Active Substance: SERTRALINE HYDROCHLORIDE

REACTIONS (2)
  - Fall [Recovered/Resolved]
  - Contusion [Unknown]
